FAERS Safety Report 20484817 (Version 5)
Quarter: 2022Q2

REPORT INFORMATION
  Report Type: Report from Study
  Country: ZA (occurrence: ZA)
  Receive Date: 20220217
  Receipt Date: 20220413
  Transmission Date: 20220721
  Serious: Yes (Hospitalization, Other)
  Sender: FDA-Public Use
  Company Number: ZA-NOVARTISPH-NVSC2022ZA010289

PATIENT
  Age: 41 Year
  Sex: Female

DRUGS (3)
  1. FINGOLIMOD HYDROCHLORIDE [Suspect]
     Active Substance: FINGOLIMOD HYDROCHLORIDE
     Indication: Multiple sclerosis
     Dosage: 0.5 MG, QD (ONE TABLET EVERY OTHER DAY)
     Route: 048
     Dates: start: 20210223
  2. FINGOLIMOD HYDROCHLORIDE [Suspect]
     Active Substance: FINGOLIMOD HYDROCHLORIDE
     Indication: Relapsing-remitting multiple sclerosis
     Dosage: 0.5 MG, QOD (EVERY 2ND DAY)
     Route: 048
  3. AUBAGIO [Concomitant]
     Active Substance: TERIFLUNOMIDE
     Indication: Product used for unknown indication
     Dosage: UNK
     Route: 065

REACTIONS (41)
  - Pneumonia [Unknown]
  - Pyrexia [Unknown]
  - Rash [Unknown]
  - Headache [Unknown]
  - Oral candidiasis [Unknown]
  - Fatigue [Unknown]
  - Dyspnoea [Unknown]
  - Muscle spasms [Unknown]
  - Nausea [Unknown]
  - Confusional state [Unknown]
  - White blood cell count increased [Unknown]
  - Visual impairment [Unknown]
  - Paraesthesia [Unknown]
  - Hypoaesthesia [Unknown]
  - Muscular weakness [Unknown]
  - Ataxia [Unknown]
  - Urinary incontinence [Unknown]
  - Cognitive disorder [Unknown]
  - Mood swings [Unknown]
  - Anisocoria [Unknown]
  - Optic atrophy [Unknown]
  - Eye movement disorder [Unknown]
  - Cranial nerve disorder [Unknown]
  - Postural tremor [Unknown]
  - Hypertonia [Unknown]
  - Allodynia [Unknown]
  - Loss of proprioception [Unknown]
  - Gait disturbance [Unknown]
  - Pain in extremity [Unknown]
  - Speech disorder [Unknown]
  - Balance disorder [Unknown]
  - Atypical pneumonia [Unknown]
  - Sepsis [Unknown]
  - Septic rash [Unknown]
  - Language disorder [Unknown]
  - Insomnia [Unknown]
  - Multiple sclerosis relapse [Unknown]
  - Multiple sclerosis [Unknown]
  - Malaise [Unknown]
  - Hypersensitivity [Unknown]
  - Off label use [Unknown]

NARRATIVE: CASE EVENT DATE: 20220101
